FAERS Safety Report 4330307-8 (Version None)
Quarter: 2004Q2

REPORT INFORMATION
  Report Type: 
  Country: None (occurrence: None)
  Receive Date: 20040402
  Receipt Date: 20040324
  Transmission Date: 20050107
  Serious: Yes (Other)
  Sender: FDA-Public Use
  Company Number: PHEH2004US03511

PATIENT

DRUGS (1)
  1. ZELNORM [Suspect]
     Indication: COLONOSCOPY
     Route: 048

REACTIONS (3)
  - HEAD INJURY [None]
  - LOSS OF CONSCIOUSNESS [None]
  - SUTURE INSERTION [None]
